FAERS Safety Report 7503801-6 (Version None)
Quarter: 2011Q2

REPORT INFORMATION
  Report Type: 
  Country: None (occurrence: None)
  Receive Date: 20110525
  Receipt Date: 20110518
  Transmission Date: 20111010
  Serious: Yes (Other)
  Sender: FDA-Public Use
  Company Number: US-JNJFOC-20110305398

PATIENT
  Sex: Female

DRUGS (4)
  1. LEVAQUIN [Suspect]
     Indication: EAR PAIN
     Route: 065
  2. LEVAQUIN [Suspect]
     Indication: OROPHARYNGEAL PAIN
     Route: 065
  3. LEVAQUIN [Suspect]
     Indication: SINUSITIS
     Route: 065
  4. LEVAQUIN [Suspect]
     Indication: NASOPHARYNGITIS
     Route: 065

REACTIONS (5)
  - ROTATOR CUFF SYNDROME [None]
  - TENDON RUPTURE [None]
  - TRIGGER FINGER [None]
  - TENOSYNOVITIS STENOSANS [None]
  - DEPRESSION [None]
